FAERS Safety Report 11657818 (Version 2)
Quarter: 2015Q4

REPORT INFORMATION
  Report Type: Spontaneous
  Country: US (occurrence: US)
  Receive Date: 20151023
  Receipt Date: 20151027
  Transmission Date: 20160304
  Serious: No
  Sender: FDA-Public Use
  Company Number: US-ABBVIE-14P-163-1322042-00

PATIENT
  Age: 37 Year
  Sex: Female

DRUGS (5)
  1. ACETAMINOPHEN. [Concomitant]
     Active Substance: ACETAMINOPHEN
     Indication: PRODUCT USED FOR UNKNOWN INDICATION
  2. NORETHINDRONE. [Suspect]
     Active Substance: NORETHINDRONE
     Indication: HORMONE THERAPY
     Route: 065
     Dates: start: 201411
  3. LUPRON DEPOT [Suspect]
     Active Substance: LEUPROLIDE ACETATE
     Indication: ENDOMETRIOSIS
     Route: 065
     Dates: start: 201411
  4. NORETHINDRONE. [Suspect]
     Active Substance: NORETHINDRONE
     Indication: BACK DISORDER
  5. IBUPROFEN. [Concomitant]
     Active Substance: IBUPROFEN
     Indication: PRODUCT USED FOR UNKNOWN INDICATION

REACTIONS (9)
  - Cough [Recovered/Resolved]
  - Oropharyngeal pain [Recovered/Resolved]
  - Hot flush [Not Recovered/Not Resolved]
  - Vaginal haemorrhage [Recovered/Resolved]
  - Ear pain [Recovered/Resolved]
  - Cold sweat [Recovered/Resolved]
  - Drug administration error [Unknown]
  - Atypical pneumonia [Recovered/Resolved]
  - Nausea [Recovered/Resolved]

NARRATIVE: CASE EVENT DATE: 201411
